FAERS Safety Report 4355333-4 (Version None)
Quarter: 2004Q2

REPORT INFORMATION
  Report Type: 
  Country: None (occurrence: None)
  Receive Date: 20040504
  Receipt Date: 20030127
  Transmission Date: 20050107
  Serious: Yes (Hospitalization)
  Sender: FDA-Public Use
  Company Number: 200302816

PATIENT
  Age: 48 Year
  Sex: Female

DRUGS (3)
  1. IBUPROFEN [Suspect]
     Indication: PAIN
     Dosage: 1 TABS PRN
     Dates: start: 20010101
  2. CELEBREX [Suspect]
     Indication: LOCALISED OSTEOARTHRITIS
     Dosage: 200 MG BID PO
     Route: 048
     Dates: start: 20011101, end: 20021104
  3. INVESTIGATIONAL STUDY DRUG (OPEN-LABEL) [Concomitant]

REACTIONS (13)
  - ASTHENIA [None]
  - BLOOD GLUCOSE INCREASED [None]
  - DIVERTICULUM [None]
  - FAECAL OCCULT BLOOD POSITIVE [None]
  - FAECES DISCOLOURED [None]
  - GASTROINTESTINAL DISORDER [None]
  - GASTROINTESTINAL HAEMORRHAGE [None]
  - HEADACHE [None]
  - HEPATIC CYST [None]
  - IRON DEFICIENCY ANAEMIA [None]
  - PLATELET COUNT DECREASED [None]
  - SYNCOPE [None]
  - VITAMIN B12 DEFICIENCY [None]
